FAERS Safety Report 6190292-3 (Version None)
Quarter: 2009Q2

REPORT INFORMATION
  Report Type: 
  Country: None (occurrence: None)
  Receive Date: 20090514
  Receipt Date: 20090504
  Transmission Date: 20091009
  Serious: Yes (Other)
  Sender: FDA-Public Use
  Company Number: A0778988A

PATIENT
  Age: 59 Year
  Sex: Male

DRUGS (1)
  1. IMITREX [Suspect]
     Indication: DRUG USE FOR UNKNOWN INDICATION
     Route: 042
     Dates: start: 20070101

REACTIONS (9)
  - CARDIAC DISORDER [None]
  - CHEST PAIN [None]
  - DYSPNOEA [None]
  - FALL [None]
  - HYPERHIDROSIS [None]
  - LOSS OF CONSCIOUSNESS [None]
  - MYOCARDIAL INFARCTION [None]
  - PAIN IN JAW [None]
  - UNEVALUABLE EVENT [None]
